FAERS Safety Report 5046518-2 (Version None)
Quarter: 2006Q3

REPORT INFORMATION
  Report Type: 
  Country: None (occurrence: None)
  Receive Date: 20060706
  Receipt Date: 20060706
  Transmission Date: 20061208
  Serious: Yes (Hospitalization)
  Sender: FDA-Public Use
  Company Number: None

PATIENT
  Age: 73 Year
  Sex: Male

DRUGS (16)
  1. HEPARIN [Suspect]
     Indication: PULMONARY EMBOLISM
     Dosage: 1250 U /25 ML /HR CONTINOUS IV DRIP
     Route: 041
     Dates: start: 20060413, end: 20060430
  2. ACETAMINOPHEN [Concomitant]
  3. ALBUTEROL SPIROS [Concomitant]
  4. CIPROFLOXACIN IN DEXTROSE 5% [Concomitant]
  5. FENTANYL CITRATE [Concomitant]
  6. SYRINGE LEUR-LOK [Concomitant]
  7. HEPARIN/SODUIM CHLORIDE [Concomitant]
  8. HYDROCORTISONE SODIUM SUCCINATE [Concomitant]
  9. HUMULIN R [Concomitant]
  10. SODIUM CHLORIDE [Concomitant]
  11. IPRATROPIUM BR [Concomitant]
  12. METHYLCELLULOSE [Concomitant]
  13. METOPROLOL TARTRATE [Concomitant]
  14. NICOTINE [Concomitant]
  15. NOREPINEPHRINE [Concomitant]
  16. LACRILUBE [Concomitant]

REACTIONS (1)
  - RETROPERITONEAL HAEMATOMA [None]
